FAERS Safety Report 9748899 (Version 3)
Quarter: 2014Q1

REPORT INFORMATION
  Report Type: Spontaneous
  Country: US (occurrence: US)
  Receive Date: 20131212
  Receipt Date: 20140312
  Transmission Date: 20141002
  Serious: No
  Sender: FDA-Public Use
  Company Number: US-INCYTE CORPORATION-2013IN001871

PATIENT
  Age: 66 Year
  Sex: Female

DRUGS (6)
  1. JAKAFI [Suspect]
     Indication: MYELOFIBROSIS
     Dosage: 10 MG, BID
     Route: 048
     Dates: start: 20120105, end: 20120412
  2. JAKAFI [Suspect]
     Dosage: 5 MG, QOD FOR 2 WEEKS
     Route: 048
     Dates: start: 20130809
  3. JAKAFI [Suspect]
     Dosage: 5 MG, QD
     Route: 048
  4. JAKAFI [Suspect]
     Dosage: 10 MG, BID
     Route: 048
  5. JAKAFI [Suspect]
     Dosage: 5 MG, QD
  6. THYROID [Concomitant]

REACTIONS (6)
  - Bacteraemia [Unknown]
  - Infection [Recovered/Resolved]
  - Gastric disorder [Unknown]
  - Diarrhoea [Unknown]
  - Weight decreased [Unknown]
  - Anaemia [Unknown]
